FAERS Safety Report 19086776 (Version 1)
Quarter: 2021Q2

REPORT INFORMATION
  Report Type: Spontaneous
  Country: US (occurrence: US)
  Receive Date: 20210401
  Receipt Date: 20210401
  Transmission Date: 20210717
  Serious: Yes (Death)
  Sender: FDA-Public Use
  Company Number: None

PATIENT
  Sex: Male

DRUGS (3)
  1. TIVICAY [Suspect]
     Active Substance: DOLUTEGRAVIR SODIUM
  2. LAMIVUDINE 150MG [Suspect]
     Active Substance: LAMIVUDINE
  3. LAMIVUDINE 150MG [Suspect]
     Active Substance: LAMIVUDINE

REACTIONS (1)
  - Death [None]
